FAERS Safety Report 4446259-6 (Version None)
Quarter: 2004Q3

REPORT INFORMATION
  Report Type: 
  Country: None (occurrence: None)
  Receive Date: 20040907
  Receipt Date: 20040823
  Transmission Date: 20050211
  Serious: Yes (Death, Hospitalization)
  Sender: FDA-Public Use
  Company Number: 04P-163-0271260-00

PATIENT
  Age: 62 Year
  Sex: Female

DRUGS (1)
  1. HUMIRA [Suspect]
     Indication: RHEUMATOID ARTHRITIS
     Dosage: 40 MG, 1 IN 2 WK, SUBCUTANEOUS
     Route: 058
     Dates: start: 20030101, end: 20040701

REACTIONS (8)
  - ARTHRITIS [None]
  - CARDIAC FAILURE [None]
  - DIARRHOEA [None]
  - KIDNEY INFECTION [None]
  - NAUSEA [None]
  - NEPHROLITHIASIS [None]
  - VOMITING [None]
  - WHITE BLOOD CELL COUNT INCREASED [None]
